FAERS Safety Report 5673980-4 (Version None)
Quarter: 2008Q1

REPORT INFORMATION
  Report Type: 
  Country: None (occurrence: None)
  Receive Date: 20080317
  Receipt Date: 20080310
  Transmission Date: 20080703
  Serious: Yes (Life-Threatening, Other)
  Sender: FDA-Public Use
  Company Number: 150-C5013-08010522

PATIENT
  Age: 62 Year
  Sex: Female
  Weight: 60 kg

DRUGS (5)
  1. CC-5013 (LENALIDOMIDE)            (CAPSULES) [Suspect]
     Indication: 5Q-SYNDROME
     Dosage: ORAL
     Route: 048
     Dates: start: 20060109, end: 20071213
  2. AZACITIDINE            (AZACITIDINE) [Concomitant]
  3. DESFERASIROX    (DEFERASIROX) [Concomitant]
  4. MIDAZOLAM HCL [Concomitant]
  5. TINZAPANNATRIUM         (HEPARIN-FRACTION, SODIUM SALT) [Concomitant]

REACTIONS (4)
  - ACUTE MYELOID LEUKAEMIA [None]
  - DISEASE PROGRESSION [None]
  - NO THERAPEUTIC RESPONSE [None]
  - THROMBOCYTOPENIA [None]
